FAERS Safety Report 15997140 (Version 6)
Quarter: 2019Q1

REPORT INFORMATION
  Report Type: Spontaneous
  Country: HU (occurrence: HU)
  Receive Date: 20190222
  Receipt Date: 20190226
  Transmission Date: 20190418
  Serious: Yes (Death)
  Sender: FDA-Public Use
  Company Number: PHHY2019HU041803

PATIENT
  Age: 14 Year
  Sex: Female

DRUGS (9)
  1. CYCLOPHOSPHAMIDE. [Suspect]
     Active Substance: CYCLOPHOSPHAMIDE
     Dosage: 2 OT, STARTING ON DAY 4
     Route: 042
     Dates: start: 200003
  2. DEXAMETHASONE. [Suspect]
     Active Substance: DEXAMETHASONE
     Indication: HAEMORRHAGE INTRACRANIAL
     Route: 065
  3. FIBROGAMMIN [Suspect]
     Active Substance: FACTOR XIII CONCENTRATE (HUMAN)
     Indication: FACTOR XIII DEFICIENCY
     Dosage: 11 OT, ON DAY 2
     Route: 065
     Dates: start: 199602
  4. FIBROGAMMIN [Suspect]
     Active Substance: FACTOR XIII CONCENTRATE (HUMAN)
     Dosage: 22 OT, 48 H DAYS 4-18
     Route: 065
     Dates: start: 199602
  5. CYCLOPHOSPHAMIDE. [Suspect]
     Active Substance: CYCLOPHOSPHAMIDE
     Indication: FACTOR XIII DEFICIENCY
     Dosage: 15 OT, DAYS 1-2
     Route: 042
     Dates: start: 199602
  6. PREDNISOLON [Suspect]
     Active Substance: PREDNISOLONE
     Indication: PRODUCT USED FOR UNKNOWN INDICATION
     Dosage: 1.5 OT, ON DAY 4-11
     Route: 065
     Dates: start: 200003
  7. CYCLOPHOSPHAMIDE. [Suspect]
     Active Substance: CYCLOPHOSPHAMIDE
     Dosage: 2 OT, DAYS 3-13
     Route: 042
     Dates: start: 199602
  8. FIBROGAMMIN [Suspect]
     Active Substance: FACTOR XIII CONCENTRATE (HUMAN)
     Dosage: 5 OT, UNK
     Route: 065
     Dates: start: 200002
  9. FIBROGAMMIN [Suspect]
     Active Substance: FACTOR XIII CONCENTRATE (HUMAN)
     Dosage: 5 OT, UNK
     Route: 065
     Dates: start: 200003

REACTIONS (1)
  - Cerebral haemorrhage [Fatal]
